FAERS Safety Report 21058063 (Version 1)
Quarter: 2022Q3

REPORT INFORMATION
  Report Type: Spontaneous
  Country: US (occurrence: US)
  Receive Date: 20220708
  Receipt Date: 20220708
  Transmission Date: 20221027
  Serious: Yes (Other)
  Sender: FDA-Public Use
  Company Number: US-MYLANLABS-2022M1051556

PATIENT
  Age: 46 Year
  Sex: Female

DRUGS (6)
  1. CARBOPLATIN [Suspect]
     Active Substance: CARBOPLATIN
     Indication: Ovarian cancer
     Dosage: UNK, Q3W (RECEIVED A TOTAL OF NINE CYCLES OF CARBOPLATIN AND PACLITAXEL...
     Route: 065
  2. PACLITAXEL [Suspect]
     Active Substance: PACLITAXEL
     Indication: Ovarian cancer
     Dosage: UNK, Q3W (RECEIVED A TOTAL OF NINE CYCLES OF CARBOPLATIN AND....
     Route: 065
  3. PACLITAXEL [Suspect]
     Active Substance: PACLITAXEL
     Dosage: UNK, QW (RECEIVED OFF-LABEL COMBINATION REGIMEN OF PEMBROLIZUMAB...
     Route: 065
  4. PEMBROLIZUMAB [Suspect]
     Active Substance: PEMBROLIZUMAB
     Indication: Ovarian cancer
     Dosage: UNK, Q3W (RECEIVED OFF-LABEL COMBINATION REGIMEN OF PEMBROLIZUMAB ...
     Route: 065
  5. DALTEPARIN [Concomitant]
     Active Substance: DALTEPARIN
     Indication: Anticoagulant therapy
     Dosage: 12500 DOSAGE FORM, QD
     Route: 058
  6. DALTEPARIN [Concomitant]
     Active Substance: DALTEPARIN
     Indication: Pulmonary embolism

REACTIONS (2)
  - Drug ineffective [Unknown]
  - Off label use [Unknown]
